FAERS Safety Report 10971645 (Version 1)
Quarter: 2015Q1

REPORT INFORMATION
  Report Type: Spontaneous
  Country: DK (occurrence: DK)
  Receive Date: 20150331
  Receipt Date: 20150331
  Transmission Date: 20150721
  Serious: Yes (Death)
  Sender: FDA-Public Use
  Company Number: DK-ASTRAZENECA-2015SE27594

PATIENT
  Age: 33337 Day
  Sex: Male

DRUGS (5)
  1. AMLODIPIN [Concomitant]
     Active Substance: AMLODIPINE BESYLATE
     Indication: HYPERTENSION
     Route: 048
  2. ARIXTRA [Suspect]
     Active Substance: FONDAPARINUX SODIUM
     Indication: THROMBOSIS PROPHYLAXIS
     Dosage: 2.5 MG/0.5 ML, 1 TIME DAILY
     Route: 058
     Dates: start: 20150312, end: 20150314
  3. HJERTEMAGNYL [Suspect]
     Active Substance: ASPIRIN\MAGNESIUM OXIDE
     Indication: THROMBOSIS PROPHYLAXIS
     Route: 048
     Dates: start: 20150312, end: 20150314
  4. CENTYL MITE MED KCL [Concomitant]
     Indication: HYPERTENSION
     Route: 048
  5. BRILIQUE [Suspect]
     Active Substance: TICAGRELOR
     Indication: THROMBOSIS PROPHYLAXIS
     Route: 048
     Dates: start: 20150312, end: 20150314

REACTIONS (3)
  - Coma [Fatal]
  - Subdural haematoma [Fatal]
  - Mental impairment [Fatal]

NARRATIVE: CASE EVENT DATE: 20150313
